FAERS Safety Report 6679322-X (Version None)
Quarter: 2010Q2

REPORT INFORMATION
  Report Type: 
  Country: None (occurrence: None)
  Receive Date: 20100413
  Receipt Date: 20100331
  Transmission Date: 20101027
  Serious: Yes (Disabling)
  Sender: FDA-Public Use
  Company Number: GB-ELI_LILLY_AND_COMPANY-GB201003008420

PATIENT
  Sex: Female
  Weight: 52.4 kg

DRUGS (1)
  1. PEMETREXED [Suspect]
     Indication: NON-SMALL CELL LUNG CANCER
     Dosage: 705 MG, ONCE EVERY THREE WEEKS
     Route: 042
     Dates: start: 20090917, end: 20100212

REACTIONS (1)
  - RAYNAUD'S PHENOMENON [None]
